FAERS Safety Report 12367032 (Version 1)
Quarter: 2016Q2

REPORT INFORMATION
  Report Type: Spontaneous
  Country: US (occurrence: US)
  Receive Date: 20160513
  Receipt Date: 20160513
  Transmission Date: 20160815
  Serious: No
  Sender: FDA-Public Use
  Company Number: GXBR2016US000644

PATIENT
  Age: 18 Year
  Sex: Female

DRUGS (1)
  1. CEFTRIAXONE. [Suspect]
     Active Substance: CEFTRIAXONE
     Dosage: UNK DF, UNK
     Route: 065
     Dates: start: 20160201

REACTIONS (1)
  - Drug administration error [Unknown]

NARRATIVE: CASE EVENT DATE: 20160201
